FAERS Safety Report 16646974 (Version 1)
Quarter: 2019Q3

REPORT INFORMATION
  Report Type: Spontaneous
  Country: FR (occurrence: FR)
  Receive Date: 20190730
  Receipt Date: 20190730
  Transmission Date: 20191004
  Serious: Yes (Other)
  Sender: FDA-Public Use
  Company Number: FR-ASTRAZENECA-2019SF07314

PATIENT
  Age: 51 Year
  Sex: Male

DRUGS (4)
  1. ADENURIC [Suspect]
     Active Substance: FEBUXOSTAT
     Dosage: UNKNOWN
     Route: 048
     Dates: end: 20190703
  2. KENACORT [Suspect]
     Active Substance: TRIAMCINOLONE
     Indication: TENDONITIS
     Dosage: 80.0MG UNKNOWN
     Route: 014
     Dates: start: 20190619
  3. KESTIN [Suspect]
     Active Substance: EBASTINE
     Dosage: UNKNOWN
     Route: 048
     Dates: end: 20190703
  4. OMEPRAZOLE. [Suspect]
     Active Substance: OMEPRAZOLE
     Route: 048
     Dates: end: 20190703

REACTIONS (1)
  - Eczema [Recovered/Resolved]

NARRATIVE: CASE EVENT DATE: 20190703
